FAERS Safety Report 18046126 (Version 1)
Quarter: 2020Q3

REPORT INFORMATION
  Report Type: Spontaneous
  Country: CN (occurrence: CN)
  Receive Date: 20200720
  Receipt Date: 20200720
  Transmission Date: 20201103
  Serious: Yes (Other)
  Sender: FDA-Public Use
  Company Number: CN-TOPROL ACQUISITION LLC-2020-TOP-000291

PATIENT
  Age: 79 Year
  Sex: Female
  Weight: 65 kg

DRUGS (3)
  1. METOPROLOL SUCCINATE. [Suspect]
     Active Substance: METOPROLOL SUCCINATE
     Dosage: A QUARTER OF A TABLET
     Route: 048
     Dates: start: 202004
  2. METOPROLOL SUCCINATE. [Suspect]
     Active Substance: METOPROLOL SUCCINATE
     Indication: ATRIAL FIBRILLATION
     Dosage: 47.5 MG, QD
     Route: 048
     Dates: start: 2012, end: 2019
  3. METOPROLOL SUCCINATE. [Suspect]
     Active Substance: METOPROLOL SUCCINATE
     Dosage: HALF A TABLET PER DAY
     Route: 048
     Dates: start: 2019, end: 202004

REACTIONS (9)
  - Fatigue [Unknown]
  - Somnolence [Unknown]
  - Intentional product misuse [Unknown]
  - Discomfort [Recovered/Resolved]
  - Heart rate increased [Unknown]
  - Suffocation feeling [Unknown]
  - Asthenia [Unknown]
  - Cerebral haemorrhage [Unknown]
  - Hypotension [Unknown]

NARRATIVE: CASE EVENT DATE: 2017
